FAERS Safety Report 8993526 (Version 1)
Quarter: 2013Q1

REPORT INFORMATION
  Report Type: Report from Study
  Country: US (occurrence: US)
  Receive Date: 20130102
  Receipt Date: 20130102
  Transmission Date: 20140127
  Serious: Yes (Hospitalization)
  Sender: FDA-Public Use
  Company Number: US-BRISTOL-MYERS SQUIBB COMPANY-15001621

PATIENT
  Age: 75 Year
  Sex: Male

DRUGS (4)
  1. DASATINIB [Suspect]
     Indication: PROSTATE CANCER
     Route: 048
     Dates: start: 20091201, end: 20100222
  2. DOCETAXEL [Suspect]
     Indication: PROSTATE CANCER
     Route: 042
     Dates: start: 20091201, end: 20100223
  3. PREDNISONE [Suspect]
     Indication: PROSTATE CANCER
     Route: 048
     Dates: start: 20091201
  4. DECADRON [Suspect]
     Indication: PREMEDICATION
     Route: 042
     Dates: start: 20091201

REACTIONS (4)
  - Pulmonary hypertension [Recovered/Resolved]
  - Listeriosis [Recovered/Resolved]
  - Diarrhoea [Recovered/Resolved]
  - Dehydration [Recovered/Resolved]
